FAERS Safety Report 13497967 (Version 1)
Quarter: 2017Q2

REPORT INFORMATION
  Report Type: Spontaneous
  Country: FR (occurrence: FR)
  Receive Date: 20170428
  Receipt Date: 20170428
  Transmission Date: 20170830
  Serious: Yes (Life-Threatening, Hospitalization, Other)
  Sender: FDA-Public Use
  Company Number: FR-BRISTOL-MYERS SQUIBB COMPANY-BMS-2017-034100

PATIENT
  Age: 93 Year
  Sex: Male

DRUGS (1)
  1. ELIQUIS [Suspect]
     Active Substance: APIXABAN
     Indication: ACUTE CORONARY SYNDROME
     Dosage: 5 MG, BID
     Route: 048
     Dates: start: 201606, end: 20170405

REACTIONS (9)
  - Urosepsis [Unknown]
  - Haematuria [Unknown]
  - Renal cyst [Unknown]
  - Upper gastrointestinal haemorrhage [Recovering/Resolving]
  - Nephrolithiasis [Unknown]
  - Product use in unapproved indication [Unknown]
  - Haemoglobin decreased [Unknown]
  - Shock haemorrhagic [Recovering/Resolving]
  - Transfusion [Unknown]

NARRATIVE: CASE EVENT DATE: 20170405
